FAERS Safety Report 5971297-1 (Version None)
Quarter: 2008Q4

REPORT INFORMATION
  Report Type: 
  Country: None (occurrence: None)
  Receive Date: 20081128
  Receipt Date: 20081124
  Transmission Date: 20090506
  Serious: Yes (Other)
  Sender: FDA-Public Use
  Company Number: US-PFIZER INC-2008097482

PATIENT
  Sex: Male
  Weight: 90.909 kg

DRUGS (3)
  1. XALATAN [Suspect]
     Indication: GLAUCOMA
     Route: 047
  2. PROZAC [Concomitant]
  3. LIPITOR [Concomitant]

REACTIONS (2)
  - BLOOD CHOLESTEROL INCREASED [None]
  - INTRAOCULAR PRESSURE INCREASED [None]
